FAERS Safety Report 4611083-8 (Version None)
Quarter: 2005Q1

REPORT INFORMATION
  Report Type: 
  Country: None (occurrence: None)
  Receive Date: 20050316
  Receipt Date: 20050316
  Transmission Date: 20050727
  Serious: Yes (Death)
  Sender: FDA-Public Use
  Company Number: None

PATIENT
  Age: 20 Year
  Sex: Male
  Weight: 67.586 kg

DRUGS (1)
  1. DURAGESIC-100 [Suspect]
     Dosage: 100 MCG/HR TDSY

REACTIONS (2)
  - ACCIDENTAL OVERDOSE [None]
  - RESPIRATORY RATE DECREASED [None]
